FAERS Safety Report 14965277 (Version 2)
Quarter: 2018Q3

REPORT INFORMATION
  Report Type: Report from Study
  Country: US (occurrence: US)
  Receive Date: 20180601
  Receipt Date: 20180925
  Transmission Date: 20181010
  Serious: Yes (Hospitalization)
  Sender: FDA-Public Use
  Company Number: US-ACTELION-A-US2018-173167

PATIENT
  Age: 57 Year
  Sex: Female
  Weight: 50.34 kg

DRUGS (3)
  1. COUMADIN [Concomitant]
     Active Substance: WARFARIN SODIUM
  2. ADCIRCA [Concomitant]
     Active Substance: TADALAFIL
  3. UPTRAVI [Suspect]
     Active Substance: SELEXIPAG
     Indication: PULMONARY ARTERIAL HYPERTENSION
     Dosage: 1200 MCG, BID
     Route: 048

REACTIONS (6)
  - Pericardial effusion [Unknown]
  - Abdominal discomfort [Unknown]
  - Viral infection [Unknown]
  - Bronchitis [Unknown]
  - Condition aggravated [Unknown]
  - Myalgia [Unknown]
